FAERS Safety Report 21629727 (Version 1)
Quarter: 2022Q4

REPORT INFORMATION
  Report Type: Spontaneous
  Country: DE (occurrence: DE)
  Receive Date: 20221122
  Receipt Date: 20221122
  Transmission Date: 20230113
  Serious: Yes (Hospitalization)
  Sender: FDA-Public Use
  Company Number: DE-ADRED-08434-01

PATIENT
  Age: 62 Year
  Sex: Male

DRUGS (7)
  1. METOPROLOL [Suspect]
     Active Substance: METOPROLOL
     Indication: Product used for unknown indication
     Dosage: UNK
     Route: 048
  2. PHENPROCOUMON [Concomitant]
     Active Substance: PHENPROCOUMON
     Dosage: 3 MG, TODAY HALF A TABLET OTHERWISE ACCORDING TO INR
     Route: 048
  3. SOTALOL GENERICS [Concomitant]
     Dosage: 80 MG, 1-0-1-0
     Route: 048
  4. ATORVASTATIN [Concomitant]
     Active Substance: ATORVASTATIN
     Dosage: 20 MG, 0-0-2-0
     Route: 048
  5. ENTRESTO [Concomitant]
     Active Substance: SACUBITRIL\VALSARTAN
     Dosage: 51|49 MG, 1-0-1-0
     Route: 048
  6. EMPAGLIFLOZIN [Concomitant]
     Active Substance: EMPAGLIFLOZIN
     Dosage: 10 MILLIGRAM 1-0-0-0
     Route: 048
  7. GLYCOPYRRONIUM\INDACATEROL [Concomitant]
     Active Substance: GLYCOPYRRONIUM\INDACATEROL
     Dosage: 1-0-0-0

REACTIONS (6)
  - Ischaemic cardiomyopathy [Unknown]
  - Tachycardia [Unknown]
  - Ejection fraction decreased [Unknown]
  - Cardioversion [Unknown]
  - Arrhythmia [Unknown]
  - Liver function test abnormal [Unknown]
